FAERS Safety Report 23168710 (Version 1)
Quarter: 2023Q4

REPORT INFORMATION
  Report Type: Report from Study
  Country: CA (occurrence: CA)
  Receive Date: 20231110
  Receipt Date: 20231110
  Transmission Date: 20240109
  Serious: Yes (Other)
  Sender: FDA-Public Use
  Company Number: CA-002147023-NVSC2022CA240161

PATIENT
  Sex: Female

DRUGS (2)
  1. HYRIMOZ [Suspect]
     Active Substance: ADALIMUMAB-ADAZ
     Indication: Crohn^s disease
     Dosage: 40 MG, QW
     Route: 058
     Dates: start: 20220310
  2. HYRIMOZ [Suspect]
     Active Substance: ADALIMUMAB-ADAZ
     Dosage: UNK
     Route: 058
     Dates: start: 20221208

REACTIONS (14)
  - Short-bowel syndrome [Unknown]
  - Groin abscess [Unknown]
  - Anxiety [Unknown]
  - General physical health deterioration [Unknown]
  - Eating disorder [Unknown]
  - Illness [Unknown]
  - Nasopharyngitis [Unknown]
  - Influenza [Unknown]
  - Arthralgia [Unknown]
  - Abscess limb [Unknown]
  - Diarrhoea [Unknown]
  - Acne [Unknown]
  - Furuncle [Unknown]
  - Off label use [Unknown]
